FAERS Safety Report 10734484 (Version 2)
Quarter: 2015Q1

REPORT INFORMATION
  Report Type: Spontaneous
  Country: US (occurrence: US)
  Receive Date: 20150123
  Receipt Date: 20150123
  Transmission Date: 20150721
  Serious: No
  Sender: FDA-Public Use
  Company Number: US-AMGEN INC.-2014-2341

PATIENT

DRUGS (2)
  1. KYPROLIS [Suspect]
     Active Substance: CARFILZOMIB
     Indication: PRODUCT USED FOR UNKNOWN INDICATION
     Dosage: DAILY DOSE: CYCLE 1?
  2. KYPROLIS [Suspect]
     Active Substance: CARFILZOMIB
     Dosage: DAILY DOSE: CYCLES 2 TO 12?

REACTIONS (1)
  - Plasma cell myeloma [Unknown]
